FAERS Safety Report 8763643 (Version 2)
Quarter: 2012Q4

REPORT INFORMATION
  Report Type: Spontaneous
  Country: US (occurrence: None)
  Receive Date: 20120827
  Receipt Date: 20120910
  Transmission Date: 20130627
  Serious: Yes (Other)
  Sender: FDA-Public Use
  Company Number: 2012P1054416

PATIENT
  Age: 75 Year
  Sex: Female

DRUGS (2)
  1. PREDNISONE [Suspect]
     Indication: KNEE SURGERY NOS
     Route: 048
     Dates: start: 20120813, end: 20120816
  2. PREDNISONE [Suspect]
     Indication: LUNG INFECTION
     Route: 048
     Dates: start: 20120813, end: 20120816

REACTIONS (3)
  - Swollen tongue [None]
  - Burning sensation [None]
  - Erythema [None]
